FAERS Safety Report 21212192 (Version 1)
Quarter: 2022Q3

REPORT INFORMATION
  Report Type: Spontaneous
  Country: US (occurrence: US)
  Receive Date: 20220815
  Receipt Date: 20220815
  Transmission Date: 20221027
  Serious: No
  Sender: FDA-Public Use
  Company Number: US-C B Fleet Co Inc-202112-US-004186

PATIENT
  Sex: Female

DRUGS (4)
  1. TAGAMET [Suspect]
     Active Substance: CIMETIDINE
     Indication: Dyspepsia
     Dosage: I TOOK TAGAMET EVERY NIGHT . TAKE 1/2 TABLET
     Route: 048
  2. SYNTHROID [Suspect]
     Active Substance: LEVOTHYROXINE SODIUM
  3. MULTI-VITAMIN [Suspect]
     Active Substance: .ALPHA.-TOCOPHEROL ACETATE, DL-\ASCORBIC ACID\CYANOCOBALAMIN\FLUORIDE ION\FOLIC ACID\NIACIN\PYRIDOXI
  4. BOTOX [Suspect]
     Active Substance: ONABOTULINUMTOXINA

REACTIONS (2)
  - Blood creatinine increased [Recovered/Resolved]
  - Underdose [None]
